FAERS Safety Report 7417449-5 (Version None)
Quarter: 2011Q2

REPORT INFORMATION
  Report Type: 
  Country: None (occurrence: None)
  Receive Date: 20110412
  Receipt Date: 20110412
  Transmission Date: 20111010
  Serious: Yes (Hospitalization, Disabling)
  Sender: FDA-Public Use
  Company Number: None

PATIENT
  Age: 93 Year
  Sex: Male
  Weight: 71.6683 kg

DRUGS (1)
  1. TEMAZEPAM [Suspect]
     Indication: SLEEP DISORDER
     Dosage: 15 MG ONCE
     Dates: start: 20110329

REACTIONS (7)
  - MOVEMENT DISORDER [None]
  - FEEDING DISORDER [None]
  - DEPRESSED LEVEL OF CONSCIOUSNESS [None]
  - APHASIA [None]
  - FALL [None]
  - MUSCULOSKELETAL STIFFNESS [None]
  - DECREASED APPETITE [None]
